FAERS Safety Report 10451311 (Version 1)
Quarter: 2014Q3

REPORT INFORMATION
  Report Type: Spontaneous
  Country: US (occurrence: US)
  Receive Date: 20140912
  Receipt Date: 20140912
  Transmission Date: 20150326
  Serious: Yes (Hospitalization)
  Sender: FDA-Public Use
  Company Number: US-GLAXOSMITHKLINE-A1088457A

PATIENT
  Age: 50 Year
  Sex: Female

DRUGS (3)
  1. HCTZ [Concomitant]
     Active Substance: HYDROCHLOROTHIAZIDE
  2. NOVOLOG [Concomitant]
     Active Substance: INSULIN ASPART
  3. VOTRIENT [Suspect]
     Active Substance: PAZOPANIB HYDROCHLORIDE
     Indication: RENAL CANCER
     Dosage: 800MG PER DAY
     Route: 048
     Dates: start: 20140827

REACTIONS (3)
  - Abdominal pain [Unknown]
  - Pneumonia [Unknown]
  - Vomiting [Unknown]

NARRATIVE: CASE EVENT DATE: 2014
